FAERS Safety Report 18041112 (Version 1)
Quarter: 2020Q3

REPORT INFORMATION
  Report Type: Spontaneous
  Country: KE (occurrence: KE)
  Receive Date: 20200718
  Receipt Date: 20200718
  Transmission Date: 20201103
  Serious: Yes (Other)
  Sender: FDA-Public Use
  Company Number: NVSC2020KE199408

PATIENT

DRUGS (10)
  1. RITUXIMAB. [Suspect]
     Active Substance: RITUXIMAB
     Indication: RETROPERITONEAL NEOPLASM
     Dosage: 2 CYCLES
     Route: 065
  2. PREDNISONE. [Suspect]
     Active Substance: PREDNISONE
     Indication: RENAL NEOPLASM
  3. CYCLOPHOSPHAMIDE. [Suspect]
     Active Substance: CYCLOPHOSPHAMIDE
     Indication: RENAL NEOPLASM
  4. DOXORUBICIN [Suspect]
     Active Substance: DOXORUBICIN
     Indication: RETROPERITONEAL NEOPLASM
     Dosage: 2 CYCLES
     Route: 065
  5. VINCRISTINE [Suspect]
     Active Substance: VINCRISTINE
     Indication: RENAL NEOPLASM
  6. RITUXIMAB. [Suspect]
     Active Substance: RITUXIMAB
     Indication: RENAL NEOPLASM
  7. CYCLOPHOSPHAMIDE. [Suspect]
     Active Substance: CYCLOPHOSPHAMIDE
     Indication: RETROPERITONEAL NEOPLASM
     Dosage: 2 CYCLES
     Route: 065
  8. DOXORUBICIN [Suspect]
     Active Substance: DOXORUBICIN
     Indication: RENAL NEOPLASM
  9. VINCRISTINE [Suspect]
     Active Substance: VINCRISTINE
     Indication: RETROPERITONEAL NEOPLASM
     Dosage: 2 CYCLES
     Route: 065
  10. PREDNISONE. [Suspect]
     Active Substance: PREDNISONE
     Indication: RETROPERITONEAL NEOPLASM
     Dosage: 2 CYCLES
     Route: 065

REACTIONS (3)
  - Retroperitoneal neoplasm [Unknown]
  - Product use in unapproved indication [Unknown]
  - Scrotal disorder [Unknown]
